FAERS Safety Report 16041352 (Version 1)
Quarter: 2019Q1

REPORT INFORMATION
  Report Type: Spontaneous
  Country: ES (occurrence: ES)
  Receive Date: 20190306
  Receipt Date: 20190306
  Transmission Date: 20190418
  Serious: Yes (Other)
  Sender: FDA-Public Use
  Company Number: ES-CLINIGEN GROUP PLC/ CLINIGEN HEALTHCARE LTD-ES-CLGN-19-0012716

PATIENT
  Age: 2 Year
  Sex: Male

DRUGS (1)
  1. FOSCARNET SODIUM. [Suspect]
     Active Substance: FOSCARNET SODIUM
     Indication: CYTOMEGALOVIRUS INFECTION
     Route: 042
     Dates: start: 20171031, end: 20171107

REACTIONS (3)
  - Off label use [Unknown]
  - Rash [Recovered/Resolved]
  - Renal tubular injury [Recovered/Resolved]

NARRATIVE: CASE EVENT DATE: 20171103
